FAERS Safety Report 9317858 (Version 1)
Quarter: 2013Q2

REPORT INFORMATION
  Report Type: Spontaneous
  Country: US (occurrence: US)
  Receive Date: 20130530
  Receipt Date: 20130530
  Transmission Date: 20140414
  Serious: No
  Sender: FDA-Public Use
  Company Number: US-NOVEN-12US005041

PATIENT
  Age: 9 Year
  Sex: Female
  Weight: 27.39 kg

DRUGS (3)
  1. DAYTRANA [Suspect]
     Indication: ATTENTION DEFICIT/HYPERACTIVITY DISORDER
     Dosage: 30 MG, UNK
     Route: 062
     Dates: start: 20120720
  2. DAYTRANA [Suspect]
     Dosage: 30 MG, UNK
     Route: 062
     Dates: start: 201205
  3. MELATONIN [Concomitant]
     Indication: INSOMNIA
     Dosage: 1 MG, PRN
     Route: 048

REACTIONS (6)
  - Disturbance in social behaviour [Not Recovered/Not Resolved]
  - Skin irritation [Not Recovered/Not Resolved]
  - Weight decreased [Not Recovered/Not Resolved]
  - Wrong technique in drug usage process [Not Recovered/Not Resolved]
  - Incorrect drug administration duration [Not Recovered/Not Resolved]
  - Product quality issue [Not Recovered/Not Resolved]
